FAERS Safety Report 13911207 (Version 2)
Quarter: 2018Q2

REPORT INFORMATION
  Report Type: Spontaneous
  Country: US (occurrence: US)
  Receive Date: 20170828
  Receipt Date: 20180406
  Transmission Date: 20180711
  Serious: Yes (Other)
  Sender: FDA-Public Use
  Company Number: US-JNJFOC-20170824155

PATIENT
  Sex: Male

DRUGS (27)
  1. IMBRUVICA [Suspect]
     Active Substance: IBRUTINIB
     Indication: NON-HODGKIN^S LYMPHOMA
     Route: 048
     Dates: start: 20170627, end: 20170811
  2. FLOMAX [Concomitant]
     Active Substance: TAMSULOSIN HYDROCHLORIDE
  3. FLEXERIL [Concomitant]
     Active Substance: CYCLOBENZAPRINE HYDROCHLORIDE
  4. TESSALON [Concomitant]
     Active Substance: BENZONATATE
  5. LISINOPRIL. [Concomitant]
     Active Substance: LISINOPRIL
  6. POTASSIUM [Concomitant]
     Active Substance: POTASSIUM
  7. ACYCLOVIR. [Concomitant]
     Active Substance: ACYCLOVIR
  8. XARELTO [Concomitant]
     Active Substance: RIVAROXABAN
  9. VITAMIN D [Concomitant]
     Active Substance: CHOLECALCIFEROL
  10. LEVOFLOXACIN. [Concomitant]
     Active Substance: LEVOFLOXACIN
  11. ALLOPURINOL. [Concomitant]
     Active Substance: ALLOPURINOL
  12. ATIVAN [Concomitant]
     Active Substance: LORAZEPAM
  13. LASIX [Concomitant]
     Active Substance: FUROSEMIDE
  14. NYSTATIN. [Concomitant]
     Active Substance: NYSTATIN
  15. NORVASC [Concomitant]
     Active Substance: AMLODIPINE BESYLATE
  16. VITAMIN B COMPLEX [Concomitant]
     Active Substance: CYANOCOBALAMIN\DEXPANTHENOL\NIACINAMIDE\PYRIDOXINE HYDROCHLORIDE\RIBOFLAVIN 5^-PHOSPHATE SODIUM\THIAMINE HYDROCHLORIDE\VITAMIN B COMPLEX
  17. LABETALOL [Concomitant]
     Active Substance: LABETALOL\LABETALOL HYDROCHLORIDE
  18. TYLENOL [Concomitant]
     Active Substance: ACETAMINOPHEN
  19. MIRALAX [Concomitant]
     Active Substance: POLYETHYLENE GLYCOL 3350
  20. COMPAZINE [Concomitant]
     Active Substance: PROCHLORPERAZINE MALEATE
  21. CLARITIN [Concomitant]
     Active Substance: LORATADINE
  22. ZOFRAN [Concomitant]
     Active Substance: ONDANSETRON HYDROCHLORIDE
  23. IMBRUVICA [Suspect]
     Active Substance: IBRUTINIB
     Indication: NON-HODGKIN^S LYMPHOMA
     Route: 048
     Dates: start: 20170818
  24. TRAMADOL. [Concomitant]
     Active Substance: TRAMADOL
  25. MILK OF MAGNESIA [Concomitant]
     Active Substance: MAGNESIUM HYDROXIDE
  26. DULCOLAX NOS [Concomitant]
     Active Substance: BISACODYL OR DOCUSATE SODIUM
  27. METOPROLOL SUCCINATE. [Concomitant]
     Active Substance: METOPROLOL SUCCINATE

REACTIONS (3)
  - Pulmonary oedema [Unknown]
  - Tooth fracture [Unknown]
  - Tooth abscess [Not Recovered/Not Resolved]

NARRATIVE: CASE EVENT DATE: 2017
